FAERS Safety Report 12562049 (Version 1)
Quarter: 2016Q3

REPORT INFORMATION
  Report Type: Report from Study
  Country: BR (occurrence: BR)
  Receive Date: 20160715
  Receipt Date: 20160715
  Transmission Date: 20161109
  Serious: Yes (Other)
  Sender: FDA-Public Use
  Company Number: BR-ABBVIE-16P-020-1676809-00

PATIENT
  Age: 71 Year
  Sex: Female
  Weight: 55 kg

DRUGS (3)
  1. ABLOK PLUS [Concomitant]
     Active Substance: ATENOLOL\CHLORTHALIDONE
     Indication: BLOOD PRESSURE ABNORMAL
     Dates: start: 2006
  2. CRESTOR [Concomitant]
     Active Substance: ROSUVASTATIN CALCIUM
     Indication: BLOOD CHOLESTEROL INCREASED
  3. SYNTHROID [Suspect]
     Active Substance: LEVOTHYROXINE SODIUM
     Indication: THYROIDECTOMY
     Dosage: DAILY DOSE:75MG; FASTING
     Route: 048
     Dates: start: 2010

REACTIONS (1)
  - Eye disorder [Unknown]

NARRATIVE: CASE EVENT DATE: 201604
